FAERS Safety Report 26010562 (Version 1)
Quarter: 2025Q4

REPORT INFORMATION
  Report Type: Report from Study
  Country: MX (occurrence: None)
  Receive Date: 20251107
  Receipt Date: 20251107
  Transmission Date: 20260117
  Serious: Yes (Hospitalization, Other)
  Sender: UCB
  Company Number: MX-UCBSA-2025069430

PATIENT
  Age: 29 Year
  Weight: 76 kg

DRUGS (1)
  1. BIMEKIZUMAB [Suspect]
     Active Substance: BIMEKIZUMAB
     Indication: Axial spondyloarthritis
     Dosage: 160 MILLIGRAM, EV 4 WEEKS

REACTIONS (5)
  - Bronchitis [Recovered/Resolved]
  - Immunodeficiency [Unknown]
  - Asthenia [Unknown]
  - Blister [Unknown]
  - Tonsillitis [Unknown]
